FAERS Safety Report 16378513 (Version 3)
Quarter: 2019Q2

REPORT INFORMATION
  Report Type: Report from Study
  Country: FR (occurrence: FR)
  Receive Date: 20190531
  Receipt Date: 20190627
  Transmission Date: 20190711
  Serious: Yes (Other)
  Sender: FDA-Public Use
  Company Number: FR-REGENERON PHARMACEUTICALS, INC.-2019-33452

PATIENT

DRUGS (10)
  1. CEMIPLIMAB [Suspect]
     Active Substance: CEMIPLIMAB
     Dosage: 3 MG/KG, QOW
     Route: 042
     Dates: start: 20190603, end: 20190603
  2. LENALIDOMIDE [Suspect]
     Active Substance: LENALIDOMIDE
     Dosage: UNK UNK, 14 DAYS OUT OF 28 DAYS
     Route: 065
     Dates: start: 201709, end: 20190603
  3. RITUXIMAB. [Concomitant]
     Active Substance: RITUXIMAB
     Indication: MANTLE CELL LYMPHOMA
     Dosage: EVERY 4 WEEKS
     Route: 065
     Dates: start: 2014
  4. FLECAINE [Concomitant]
     Active Substance: FLECAINIDE
     Indication: ATRIAL FIBRILLATION
     Dosage: 1 DF, QD
     Route: 048
     Dates: start: 2014
  5. LENALIDOMIDE [Suspect]
     Active Substance: LENALIDOMIDE
     Indication: MANTLE CELL LYMPHOMA
     Dosage: UNK UNK, Q4W(EVERY 4 W14 DAYS OUT OF 28 DAYS)
     Route: 065
     Dates: start: 201709
  6. TAHOR [Concomitant]
     Active Substance: ATORVASTATIN CALCIUM
     Indication: DYSLIPIDAEMIA
     Dosage: 10 MG, QD
     Route: 048
  7. CEMIPLIMAB [Suspect]
     Active Substance: CEMIPLIMAB
     Indication: SQUAMOUS CELL CARCINOMA OF SKIN
     Dosage: 3 MG/KG, QOW
     Route: 042
     Dates: start: 20190419, end: 20190419
  8. DIGOXINE [Concomitant]
     Active Substance: DIGOXIN
     Indication: ATRIAL FIBRILLATION
     Dosage: 1 DF, QD
     Route: 048
  9. CEMIPLIMAB [Suspect]
     Active Substance: CEMIPLIMAB
     Indication: METASTASES TO BONE
     Dosage: 3 MG/KG, QOW
     Route: 042
     Dates: start: 20190517, end: 20190517
  10. TAHOR [Concomitant]
     Active Substance: ATORVASTATIN CALCIUM
     Dosage: 10 MG, QD

REACTIONS (3)
  - Hepatocellular injury [Recovered/Resolved]
  - Condition aggravated [Recovered/Resolved]
  - Disease progression [Unknown]

NARRATIVE: CASE EVENT DATE: 20190430
